FAERS Safety Report 14607490 (Version 1)
Quarter: 2018Q1

REPORT INFORMATION
  Report Type: Spontaneous
  Country: PT (occurrence: PT)
  Receive Date: 20180307
  Receipt Date: 20180307
  Transmission Date: 20180509
  Serious: Yes (Other)
  Sender: FDA-Public Use
  Company Number: PT-MYLANLABS-2018M1014039

PATIENT
  Age: 18 Month
  Sex: Female

DRUGS (8)
  1. HYDROCORTISONE. [Suspect]
     Active Substance: HYDROCORTISONE
     Indication: DERMATITIS DIAPER
     Dosage: UNK
     Route: 061
  2. CLOTRIMAZOLE. [Suspect]
     Active Substance: CLOTRIMAZOLE
     Indication: DERMATITIS DIAPER
     Dosage: UNK
     Route: 061
  3. CLOTRIMAZOLE. [Suspect]
     Active Substance: CLOTRIMAZOLE
     Indication: CONDITION AGGRAVATED
  4. ZINC OXIDE. [Suspect]
     Active Substance: ZINC OXIDE
     Indication: CONDITION AGGRAVATED
  5. BETAMETHASONE. [Suspect]
     Active Substance: BETAMETHASONE
     Indication: CONDITION AGGRAVATED
  6. HYDROCORTISONE. [Suspect]
     Active Substance: HYDROCORTISONE
     Indication: CONDITION AGGRAVATED
  7. ZINC OXIDE. [Suspect]
     Active Substance: ZINC OXIDE
     Indication: DERMATITIS DIAPER
     Dosage: UNK
     Route: 061
  8. BETAMETHASONE. [Suspect]
     Active Substance: BETAMETHASONE
     Indication: DERMATITIS DIAPER
     Dosage: UNK
     Route: 061

REACTIONS (2)
  - Granuloma skin [Recovered/Resolved]
  - Nodular rash [Recovered/Resolved]
